FAERS Safety Report 7415481-9 (Version None)
Quarter: 2011Q2

REPORT INFORMATION
  Report Type: 
  Country: None (occurrence: None)
  Receive Date: 20110414
  Receipt Date: 20110401
  Transmission Date: 20111010
  Serious: Yes (Hospitalization)
  Sender: FDA-Public Use
  Company Number: US-JNJFOC-20110310757

PATIENT
  Sex: Male
  Weight: 49 kg

DRUGS (5)
  1. REMICADE [Suspect]
     Indication: INFLAMMATORY BOWEL DISEASE
     Route: 042
  2. REMICADE [Suspect]
     Route: 042
  3. PROBIOTICS [Concomitant]
  4. REMICADE [Suspect]
     Route: 042
  5. BUDESONIDE [Concomitant]

REACTIONS (1)
  - ABDOMINAL PAIN [None]
